FAERS Safety Report 8740540 (Version 2)
Quarter: 2013Q4

REPORT INFORMATION
  Report Type: Spontaneous
  Country: US (occurrence: US)
  Receive Date: 20120823
  Receipt Date: 20131031
  Transmission Date: 20140711
  Serious: No
  Sender: FDA-Public Use
  Company Number: US-009507513-2012SP030288

PATIENT
  Sex: Male

DRUGS (2)
  1. ASMANEX [Suspect]
     Indication: ASTHMA
     Dosage: 220/NOT SPECIFIED
  2. ASMANEX [Suspect]
     Indication: BRONCHITIS

REACTIONS (2)
  - Meniscus injury [Unknown]
  - Drug dose omission [Unknown]
